FAERS Safety Report 6060489-1 (Version None)
Quarter: 2009Q1

REPORT INFORMATION
  Report Type: 
  Country: None (occurrence: None)
  Receive Date: 20090201
  Receipt Date: 20090123
  Transmission Date: 20090719
  Serious: Yes (Other)
  Sender: FDA-Public Use
  Company Number: GB-ALLERGAN-0900918US

PATIENT
  Sex: Male
  Weight: 74 kg

DRUGS (7)
  1. DYSPORT [Suspect]
     Indication: MUSCLE SPASMS
     Dosage: UNK, SINGLE
     Route: 030
     Dates: start: 20080905, end: 20080905
  2. DYSPORT [Suspect]
     Indication: PARKINSON'S DISEASE
  3. ASPIRIN [Concomitant]
  4. ATORVASTATIN [Concomitant]
  5. CO-CARELDOPA [Concomitant]
  6. DISIPAL [Concomitant]
  7. MIRAPEX [Concomitant]

REACTIONS (1)
  - PEMPHIGOID [None]
